FAERS Safety Report 13852428 (Version 3)
Quarter: 2018Q1

REPORT INFORMATION
  Report Type: Spontaneous
  Country: US (occurrence: US)
  Receive Date: 20170810
  Receipt Date: 20180223
  Transmission Date: 20180508
  Serious: Yes (Hospitalization, Other)
  Sender: FDA-Public Use
  Company Number: US-GEMINI LABORATORIES, LLC-GEM201708-000009

PATIENT
  Age: 71 Year
  Sex: Male
  Weight: 99.8 kg

DRUGS (7)
  1. LIPITOR [Concomitant]
     Active Substance: ATORVASTATIN CALCIUM
     Indication: BLOOD CHOLESTEROL
  2. LISINOPRIL. [Concomitant]
     Active Substance: LISINOPRIL
     Indication: BLOOD GLUCOSE INCREASED
  3. PRANDIN [Suspect]
     Active Substance: REPAGLINIDE
  4. PRANDIN [Suspect]
     Active Substance: REPAGLINIDE
  5. PRANDIN [Suspect]
     Active Substance: REPAGLINIDE
     Route: 048
     Dates: start: 2002
  6. PRANDIN [Suspect]
     Active Substance: REPAGLINIDE
     Indication: DIABETES MELLITUS
     Dates: start: 2002
  7. LISINOPRIL. [Concomitant]
     Active Substance: LISINOPRIL
     Indication: HYPERTENSION

REACTIONS (13)
  - Medication error [Unknown]
  - Retching [Recovered/Resolved]
  - Cholangitis [Recovered/Resolved]
  - Vomiting [Recovered/Resolved]
  - Weight decreased [Unknown]
  - Cholecystectomy [Unknown]
  - Blood glucose increased [Unknown]
  - Abdominal pain upper [Recovered/Resolved]
  - Abdominal discomfort [Recovered/Resolved]
  - Condition aggravated [Unknown]
  - Unresponsive to stimuli [Recovered/Resolved]
  - Blood glucose increased [Recovered/Resolved]
  - Blood glucose increased [Not Recovered/Not Resolved]

NARRATIVE: CASE EVENT DATE: 201704
